FAERS Safety Report 12450793 (Version 1)
Quarter: 2016Q2

REPORT INFORMATION
  Report Type: Spontaneous
  Country: US (occurrence: US)
  Receive Date: 20160609
  Receipt Date: 20160609
  Transmission Date: 20160815
  Serious: No
  Sender: FDA-Public Use
  Company Number: US-PERRIGO-15US012520

PATIENT
  Sex: Male

DRUGS (1)
  1. PERMETHRIN. [Suspect]
     Active Substance: PERMETHRIN
     Indication: PRURITUS
     Dosage: LESS THAN A HALF TUBE, SINGLE
     Route: 061
     Dates: start: 20151124, end: 20151124

REACTIONS (2)
  - Off label use [Recovered/Resolved]
  - No adverse event [Recovered/Resolved]

NARRATIVE: CASE EVENT DATE: 20151124
